FAERS Safety Report 4427728-1 (Version None)
Quarter: 2004Q3

REPORT INFORMATION
  Report Type: 
  Country: None (occurrence: None)
  Receive Date: 20040812
  Receipt Date: 20040803
  Transmission Date: 20050211
  Serious: Yes (Death, Life-Threatening, Other)
  Sender: FDA-Public Use
  Company Number: 2004-07-1443

PATIENT
  Age: 74 Year
  Sex: Female

DRUGS (3)
  1. CELESTONE SOLUSPAN [Suspect]
     Indication: URTICARIA
     Dosage: 1 DOSE(S)
  2. PENICILLIN G [Suspect]
     Indication: HYPERSENSITIVITY
     Dosage: (1) 400U VIAL INTRAMUSCU; 1 DOSE(S)
     Route: 030
  3. PENICILLIN G [Suspect]
     Indication: INFECTION
     Dosage: (1) 400U VIAL INTRAMUSCU; 1 DOSE(S)
     Route: 030

REACTIONS (2)
  - CARDIAC ARREST [None]
  - CONVULSION [None]
